FAERS Safety Report 8852048 (Version 1)
Quarter: 2012Q4

REPORT INFORMATION
  Report Type: 
  Country: US (occurrence: US)
  Receive Date: 20121022
  Receipt Date: 20121022
  Transmission Date: 20130627
  Serious: Yes (Hospitalization)
  Sender: FDA-Public Use
  Company Number: US-JNJFOC-20121009817

PATIENT
  Age: 60 Year
  Sex: Male
  Weight: 73.48 kg

DRUGS (3)
  1. ROGAINE FOR MEN EXTRA STRENGTH FOAM UNSCENTED [Suspect]
     Route: 061
  2. ROGAINE FOR MEN EXTRA STRENGTH FOAM UNSCENTED [Suspect]
     Indication: HAIR GROWTH ABNORMAL
     Dosage: a cap full 1-2 times daily
     Route: 061
  3. UNKNOWN MEDICATION [Concomitant]
     Route: 065

REACTIONS (8)
  - Bronchitis [Unknown]
  - Myocardial infarction [Unknown]
  - Memory impairment [Unknown]
  - Atypical pneumonia [Unknown]
  - Loss of consciousness [Unknown]
  - Pericardial effusion [Recovered/Resolved]
  - Incorrect dose administered [Unknown]
  - Product container issue [Unknown]
